FAERS Safety Report 6554266-2 (Version None)
Quarter: 2010Q1

REPORT INFORMATION
  Report Type: 
  Country: None (occurrence: None)
  Receive Date: 20100127
  Receipt Date: 20100115
  Transmission Date: 20100710
  Serious: Yes (Other)
  Sender: FDA-Public Use
  Company Number: GB-WATSON-2010-00649

PATIENT
  Age: 66 Year
  Sex: Male

DRUGS (2)
  1. METRONIDAZOLE [Suspect]
     Indication: INFECTION
     Dosage: 200 MG, Q6H
     Route: 065
  2. AZATHIOPRINE [Suspect]
     Indication: GANGRENE
     Dosage: 150 MG, DAILY

REACTIONS (2)
  - DRUG INTERACTION [None]
  - NEUTROPENIA [None]
